FAERS Safety Report 6226701-0 (Version None)
Quarter: 2009Q2

REPORT INFORMATION
  Report Type: 
  Country: None (occurrence: None)
  Receive Date: 20090612
  Receipt Date: 20090605
  Transmission Date: 20091009
  Serious: Yes (Other)
  Sender: FDA-Public Use
  Company Number: LB-JNJFOC-20090603135

PATIENT
  Age: 6 Year
  Sex: Male
  Weight: 22 kg

DRUGS (2)
  1. TOPAMAX [Suspect]
     Indication: EPILEPSY
     Route: 048
  2. TEGRETOL [Suspect]
     Indication: EPILEPSY
     Route: 065

REACTIONS (8)
  - DIARRHOEA [None]
  - DISTURBANCE IN ATTENTION [None]
  - ERUCTATION [None]
  - INTESTINAL FUNCTIONAL DISORDER [None]
  - IRRITABILITY [None]
  - MEMORY IMPAIRMENT [None]
  - NAUSEA [None]
  - URINARY INCONTINENCE [None]
